FAERS Safety Report 8473375-4 (Version None)
Quarter: 2012Q2

REPORT INFORMATION
  Report Type: 
  Country: None (occurrence: None)
  Receive Date: 20120628
  Receipt Date: 20120618
  Transmission Date: 20120825
  Serious: Yes (Hospitalization)
  Sender: FDA-Public Use
  Company Number: US-BIOGENIDEC-2012BI021640

PATIENT
  Age: 39 Year
  Sex: Female

DRUGS (1)
  1. AVONEX [Suspect]
     Indication: MULTIPLE SCLEROSIS
     Route: 030
     Dates: end: 20080101

REACTIONS (6)
  - DIARRHOEA [None]
  - VOMITING [None]
  - GAIT DISTURBANCE [None]
  - BLOOD POTASSIUM DECREASED [None]
  - ABDOMINAL PAIN [None]
  - COLITIS ULCERATIVE [None]
